FAERS Safety Report 21196950 (Version 1)
Quarter: 2022Q3

REPORT INFORMATION
  Report Type: Spontaneous
  Country: US (occurrence: None)
  Receive Date: 20220810
  Receipt Date: 20220810
  Transmission Date: 20221027
  Serious: Yes (Other)
  Sender: FDA-Public Use
  Company Number: None

PATIENT
  Sex: Female

DRUGS (1)
  1. OXYBUTYNIN [Suspect]
     Active Substance: OXYBUTYNIN
     Dates: start: 20210721, end: 20220522

REACTIONS (4)
  - Drug ineffective [None]
  - Dizziness [None]
  - Nausea [None]
  - Dry mouth [None]
